FAERS Safety Report 16135987 (Version 2)
Quarter: 2021Q2

REPORT INFORMATION
  Report Type: Spontaneous
  Country: DE (occurrence: DE)
  Receive Date: 20190329
  Receipt Date: 20210512
  Transmission Date: 20210716
  Serious: Yes (Other)
  Sender: FDA-Public Use
  Company Number: DE-UCBSA-2019012674

PATIENT
  Sex: Female

DRUGS (2)
  1. LEVETIRACETAM UCB [Suspect]
     Active Substance: LEVETIRACETAM
     Indication: EPILEPSY
     Dosage: UNK
     Dates: start: 201703, end: 201805
  2. VIMPAT [Suspect]
     Active Substance: LACOSAMIDE
     Indication: EPILEPSY
     Dosage: UNK
     Dates: end: 201805

REACTIONS (21)
  - Arthralgia [Unknown]
  - Weight decreased [Unknown]
  - Hallucination [Unknown]
  - Paraesthesia [Unknown]
  - Amnesia [Unknown]
  - Arrhythmia [Unknown]
  - Coordination abnormal [Unknown]
  - Blood pressure decreased [Unknown]
  - Insomnia [Unknown]
  - Abdominal distension [Unknown]
  - Abdominal pain [Unknown]
  - Aggression [Unknown]
  - Nausea [Unknown]
  - Nightmare [Unknown]
  - Panic attack [Unknown]
  - Tremor [Unknown]
  - Cough [Unknown]
  - Anxiety [Unknown]
  - Hyperhidrosis [Unknown]
  - Restlessness [Unknown]
  - Memory impairment [Not Recovered/Not Resolved]
